FAERS Safety Report 8958353 (Version 1)
Quarter: 2012Q4

REPORT INFORMATION
  Report Type: 
  Country: US (occurrence: US)
  Receive Date: 20121210
  Receipt Date: 20121210
  Transmission Date: 20130627
  Serious: Yes (Hospitalization)
  Sender: FDA-Public Use
  Company Number: US-GLAXOSMITHKLINE-A0833034A

PATIENT
  Sex: Female
  Weight: 101.4 kg

DRUGS (1)
  1. AVANDIA [Suspect]
     Indication: TYPE 2 DIABETES MELLITUS
     Route: 048
     Dates: start: 200503, end: 200509

REACTIONS (4)
  - Cardiac failure congestive [Not Recovered/Not Resolved]
  - Diabetes mellitus [Unknown]
  - Dyspnoea [Unknown]
  - Weight increased [Unknown]
